FAERS Safety Report 12345410 (Version 1)
Quarter: 2016Q2

REPORT INFORMATION
  Report Type: Spontaneous
  Country: US (occurrence: US)
  Receive Date: 20160508
  Receipt Date: 20160508
  Transmission Date: 20160815
  Serious: No
  Sender: FDA-Public Use
  Company Number: US-TEVA-652745ACC

PATIENT
  Sex: Female
  Weight: 77.63 kg

DRUGS (1)
  1. PARAGARD T 380A [Suspect]
     Active Substance: COPPER
     Indication: CONTRACEPTION
     Dates: start: 20160216, end: 20160404

REACTIONS (3)
  - Pain [Unknown]
  - Exposure during breast feeding [Unknown]
  - Device expulsion [Recovered/Resolved]
